FAERS Safety Report 16004774 (Version 11)
Quarter: 2019Q3

REPORT INFORMATION
  Report Type: Report from Study
  Country: US (occurrence: US)
  Receive Date: 20190226
  Receipt Date: 20190802
  Transmission Date: 20191004
  Serious: Yes (Hospitalization)
  Sender: FDA-Public Use
  Company Number: PHHO2018US012066

PATIENT
  Age: 12 Year
  Sex: Male
  Weight: 83 kg

DRUGS (33)
  1. INC424A [Suspect]
     Active Substance: RUXOLITINIB
     Dosage: 95 MG, BID
     Route: 048
     Dates: start: 20190110, end: 20190123
  2. METHOTREXATE. [Suspect]
     Active Substance: METHOTREXATE
     Dosage: 15 MG, ONCE/SINGLE
     Route: 037
     Dates: start: 20190419, end: 20190419
  3. CYTARABINE. [Suspect]
     Active Substance: CYTARABINE
     Dosage: 156 MILLIGRAM, QD
     Route: 058
     Dates: start: 20190419
  4. CYTARABINE. [Suspect]
     Active Substance: CYTARABINE
     Dosage: 156 MILLIGRAM, QD
     Route: 058
     Dates: start: 20190429, end: 20190502
  5. CYCLOPHOSPHAMIDE. [Suspect]
     Active Substance: CYCLOPHOSPHAMIDE
     Dosage: 2080 MG, ONCE/SINGLE
     Route: 042
     Dates: start: 20190419
  6. INC424A [Suspect]
     Active Substance: RUXOLITINIB
     Dosage: 100 MG, BID
     Route: 048
     Dates: start: 20190419
  7. METHOTREXATE. [Suspect]
     Active Substance: METHOTREXATE
     Dosage: 15 MG, ONCE/SINGLE
     Route: 037
     Dates: start: 20190429, end: 20190429
  8. METHOTREXATE. [Suspect]
     Active Substance: METHOTREXATE
     Dosage: 8600 MG, ONCE/SINGLE
     Route: 042
     Dates: start: 20181123, end: 20181123
  9. CYTARABINE. [Suspect]
     Active Substance: CYTARABINE
     Dosage: 156 MG, QD
     Route: 058
     Dates: start: 20190429
  10. PEGASPARGASE [Suspect]
     Active Substance: PEGASPARGASE
     Dosage: 4973 UNITS ONCE ONCE OVER 2HRS
     Route: 042
     Dates: end: 20190225
  11. VINCRISTINE [Suspect]
     Active Substance: VINCRISTINE
     Dosage: 2 MG, ONCE/SINGLE
     Route: 042
     Dates: start: 20190128
  12. INC424A [Suspect]
     Active Substance: RUXOLITINIB
     Indication: ACUTE LYMPHOCYTIC LEUKAEMIA
     Dosage: 90 MG, BID
     Route: 048
     Dates: start: 20181015, end: 20181028
  13. MERCAPTOPURINE. [Suspect]
     Active Substance: MERCAPTOPURINE
     Dosage: 50 MG, QD
     Route: 048
     Dates: start: 20190128, end: 20190129
  14. NEURONTIN [Concomitant]
     Active Substance: GABAPENTIN
     Indication: PERIPHERAL SENSORY NEUROPATHY
  15. CYTARABINE. [Suspect]
     Active Substance: CYTARABINE
     Dosage: 156 MG, QD
     Route: 058
     Dates: start: 20190419
  16. CYCLOPHOSPHAMIDE. [Suspect]
     Active Substance: CYCLOPHOSPHAMIDE
     Indication: ACUTE LYMPHOCYTIC LEUKAEMIA
     Dosage: 1840 MG, ONCE/SINGLE
     Route: 042
     Dates: start: 20181015, end: 20181015
  17. THIOGUANINE [Suspect]
     Active Substance: THIOGUANINE
     Indication: ACUTE LYMPHOCYTIC LEUKAEMIA
     Dosage: 120 MG, QD
     Route: 048
     Dates: start: 20190419, end: 20190426
  18. THIOGUANINE [Suspect]
     Active Substance: THIOGUANINE
     Dosage: 120 MG, QD
     Route: 048
     Dates: start: 20190427
  19. LEUCOVORIN. [Suspect]
     Active Substance: LEUCOVORIN
     Indication: ACUTE LYMPHOCYTIC LEUKAEMIA
     Dosage: 28.6 MG, BID
     Route: 042
     Dates: start: 20190120, end: 20190131
  20. ROCEPHIN [Concomitant]
     Active Substance: CEFTRIAXONE SODIUM
     Indication: PYREXIA
     Dosage: 2 G, QD
     Route: 042
     Dates: start: 20190423, end: 20190425
  21. METHOTREXATE. [Suspect]
     Active Substance: METHOTREXATE
     Indication: ACUTE LYMPHOCYTIC LEUKAEMIA
     Dosage: 8600 MG, ONCE/SINGLE
     Route: 042
     Dates: start: 20181123, end: 20181123
  22. MERCAPTOPURINE. [Suspect]
     Active Substance: MERCAPTOPURINE
     Indication: ACUTE LYMPHOCYTIC LEUKAEMIA
     Dosage: 1100 MG MONDAY TO THURSDAY AND 125 MG FRI TO SUN FOR 2 WEEKS
     Route: 048
     Dates: start: 20181015, end: 20181028
  23. BACTRIM [Concomitant]
     Active Substance: SULFAMETHOXAZOLE\TRIMETHOPRIM
     Indication: ANTIFUNGAL PROPHYLAXIS
     Dosage: 2 TABLETS, TIW, BID
     Route: 048
     Dates: start: 20180810
  24. METHOTREXATE. [Suspect]
     Active Substance: METHOTREXATE
     Dosage: 15 MILLIGRAM, ONCE
     Route: 037
     Dates: start: 20190429, end: 20190429
  25. CYTARABINE. [Suspect]
     Active Substance: CYTARABINE
     Indication: ACUTE LYMPHOCYTIC LEUKAEMIA
     Dosage: 1.38 ML, QD
     Route: 058
     Dates: start: 20181022, end: 20181026
  26. ROCEPHIN [Concomitant]
     Active Substance: CEFTRIAXONE SODIUM
     Dosage: 2 GRAM, QD
     Route: 042
     Dates: start: 20190423, end: 20190425
  27. ROXICODONE [Concomitant]
     Active Substance: OXYCODONE HYDROCHLORIDE
     Indication: PAIN MANAGEMENT
     Dosage: 5 MG, Q4H
     Route: 048
     Dates: start: 20180808
  28. MAGIC MOUTHWASH [Concomitant]
     Active Substance: DIPHENHYDRAMINE HYDROCHLORIDE\LIDOCAINE HYDROCHLORIDE\NYSTATIN
     Indication: STOMATITIS
     Dosage: 10 ML SWISH AND SPIT, QID PRN
     Route: 065
     Dates: start: 20180822
  29. VINCRISTINE [Suspect]
     Active Substance: VINCRISTINE
     Indication: ACUTE LYMPHOCYTIC LEUKAEMIA
     Dosage: 2 MG, ONCE/SINGLE
     Route: 042
     Dates: start: 20181029, end: 20181029
  30. ZOFRAN [Concomitant]
     Active Substance: ONDANSETRON HYDROCHLORIDE
     Indication: PROPHYLAXIS OF NAUSEA AND VOMITING
     Dosage: 8 MG, Q8H
     Route: 048
     Dates: start: 20180809
  31. PEGASPARGASE [Suspect]
     Active Substance: PEGASPARGASE
     Indication: ACUTE LYMPHOCYTIC LEUKAEMIA
     Dosage: 4598 UNITS ONCE ONCE OVER 2HRS
     Route: 042
     Dates: start: 20181029
  32. NEURONTIN [Concomitant]
     Active Substance: GABAPENTIN
     Indication: PERIPHERAL MOTOR NEUROPATHY
     Dosage: 300 MG, TID
     Route: 048
     Dates: start: 20181001
  33. ROXICODONE [Concomitant]
     Active Substance: OXYCODONE HYDROCHLORIDE
     Indication: HEADACHE

REACTIONS (5)
  - Parainfluenzae virus infection [Recovered/Resolved]
  - Thrombocytopenia [Recovered/Resolved]
  - Venoocclusive liver disease [Recovered/Resolved]
  - Febrile neutropenia [Recovered/Resolved]
  - Febrile neutropenia [Recovered/Resolved]

NARRATIVE: CASE EVENT DATE: 20181101
